FAERS Safety Report 9158623 (Version 1)
Quarter: 2013Q1

REPORT INFORMATION
  Report Type: Spontaneous
  Country: US (occurrence: US)
  Receive Date: 20130312
  Receipt Date: 20130312
  Transmission Date: 20140127
  Serious: Yes (Other)
  Sender: FDA-Public Use
  Company Number: GXBR2012US001661

PATIENT
  Age: 34 Year
  Sex: Female
  Weight: 67.57 kg

DRUGS (3)
  1. ETHINYL ESTRADIOL\LEVONORGESTREL [Suspect]
     Indication: CONTRACEPTION
     Dosage: 0.15MG LEVONORGESTREL/0.03MG ETHINYL ESTRADIOL QD
     Route: 048
     Dates: start: 201202, end: 20120521
  2. COPAXONE [Suspect]
     Indication: MULTIPLE SCLEROSIS
     Dosage: 10 MG, QD
     Route: 030
     Dates: start: 2005, end: 20120521
  3. BACLOFEN [Suspect]
     Indication: MULTIPLE SCLEROSIS
     Dosage: 10 MG, TID
     Route: 048
     Dates: start: 2005, end: 20120521

REACTIONS (5)
  - Premature rupture of membranes [Unknown]
  - Premature labour [Unknown]
  - Pregnancy on oral contraceptive [Not Recovered/Not Resolved]
  - Maternal exposure during pregnancy [Not Recovered/Not Resolved]
  - Product quality issue [None]
